FAERS Safety Report 5293744-3 (Version None)
Quarter: 2007Q2

REPORT INFORMATION
  Report Type: 
  Country: None (occurrence: None)
  Receive Date: 20070405
  Receipt Date: 20070327
  Transmission Date: 20071010
  Serious: Yes (Hospitalization)
  Sender: FDA-Public Use
  Company Number: 2007RR-06605

PATIENT
  Age: 49 Year
  Sex: Male

DRUGS (2)
  1. FUROSEMIDE [Suspect]
     Indication: HYPERTENSION
  2. ACE INHIBITORS (ACE INHIBITORS) [Suspect]
     Indication: HYPERTENSION

REACTIONS (5)
  - COLITIS ISCHAEMIC [None]
  - COLITIS ULCERATIVE [None]
  - COLON CANCER [None]
  - GASTROINTESTINAL DYSPLASIA [None]
  - LARGE INTESTINAL STRICTURE [None]
